FAERS Safety Report 5955064-0 (Version None)
Quarter: 2008Q4

REPORT INFORMATION
  Report Type: 
  Country: None (occurrence: None)
  Receive Date: 20081117
  Receipt Date: 20081113
  Transmission Date: 20090506
  Serious: Yes (Hospitalization)
  Sender: FDA-Public Use
  Company Number: B0545362A

PATIENT
  Age: 53 Year
  Sex: Male

DRUGS (5)
  1. ZELITREX [Suspect]
     Indication: DRUG USE FOR UNKNOWN INDICATION
     Route: 065
     Dates: start: 20080916, end: 20081004
  2. VELCADE [Suspect]
     Dosage: 2.3MG PER DAY
     Route: 042
     Dates: start: 20080916, end: 20080926
  3. DEXAMETHASONE 0.5MG TAB [Suspect]
     Dosage: 20MG CYCLIC
     Route: 042
     Dates: start: 20080916, end: 20080927
  4. BACTRIM [Suspect]
     Dosage: 1TAB ALTERNATE DAYS
     Route: 048
     Dates: start: 20080916, end: 20081004
  5. OMEPRAZOLE [Suspect]
     Route: 048
     Dates: end: 20081004

REACTIONS (14)
  - ALANINE AMINOTRANSFERASE INCREASED [None]
  - ASPARTATE AMINOTRANSFERASE INCREASED [None]
  - BLOOD ALKALINE PHOSPHATASE INCREASED [None]
  - CHILLS [None]
  - ERYTHEMA [None]
  - GAMMA-GLUTAMYLTRANSFERASE INCREASED [None]
  - HEADACHE [None]
  - HEPATITIS ACUTE [None]
  - HEPATOCELLULAR INJURY [None]
  - PAIN [None]
  - PRURIGO [None]
  - SKIN REACTION [None]
  - SWELLING FACE [None]
  - TOXIC SKIN ERUPTION [None]
